FAERS Safety Report 5792953-4 (Version None)
Quarter: 2008Q2

REPORT INFORMATION
  Report Type: 
  Country: None (occurrence: None)
  Receive Date: 20080626
  Receipt Date: 20080626
  Transmission Date: 20081010
  Serious: Yes (Hospitalization)
  Sender: FDA-Public Use
  Company Number: None

PATIENT
  Age: 51 Year
  Sex: Male
  Weight: 66.6788 kg

DRUGS (1)
  1. MORPHINE SULFATE [Suspect]
     Indication: PANCREATIC CARCINOMA
     Dosage: 120 MILIGRAMS EVERY 8 HOURS
     Dates: start: 20080512, end: 20080605

REACTIONS (6)
  - AMNESIA [None]
  - DISEASE COMPLICATION [None]
  - DYSARTHRIA [None]
  - GAIT DISTURBANCE [None]
  - HALLUCINATION [None]
  - PHARMACEUTICAL PRODUCT COMPLAINT [None]
